FAERS Safety Report 25354412 (Version 2)
Quarter: 2025Q2

REPORT INFORMATION
  Report Type: Spontaneous
  Country: US (occurrence: US)
  Receive Date: 20250523
  Receipt Date: 20250611
  Transmission Date: 20250717
  Serious: Yes (Hospitalization, Disabling, Other)
  Sender: MERCK SHARP & DOHME LLC
  Company Number: US-009507513-2288360

PATIENT
  Sex: Male
  Weight: 142 kg

DRUGS (2)
  1. PEMBROLIZUMAB [Suspect]
     Active Substance: PEMBROLIZUMAB
     Indication: Renal cell carcinoma stage IV
     Dosage: RECEIVED 10 CYCLES OF PEMBROLIZUMAB
     Route: 042
     Dates: start: 20230830, end: 20240405
  2. LENVATINIB [Suspect]
     Active Substance: LENVATINIB
     Indication: Renal cell carcinoma stage IV
     Route: 048
     Dates: end: 20240405

REACTIONS (4)
  - Glomerulonephritis proliferative [Not Recovered/Not Resolved]
  - Renal failure [Not Recovered/Not Resolved]
  - Hypothyroidism [Unknown]
  - Swelling [Not Recovered/Not Resolved]
